FAERS Safety Report 7103122-X (Version None)
Quarter: 2010Q4

REPORT INFORMATION
  Report Type: 
  Country: None (occurrence: None)
  Receive Date: 20101115
  Receipt Date: 20101110
  Transmission Date: 20110411
  Serious: Yes (Death)
  Sender: FDA-Public Use
  Company Number: US-GENZYME-CERZ-1001647

PATIENT

DRUGS (1)
  1. CEREZYME [Suspect]
     Indication: GAUCHER'S DISEASE
     Dosage: 3800 U, Q2W
     Route: 042
     Dates: start: 19970610

REACTIONS (5)
  - DEATH [None]
  - LUNG TRANSPLANT [None]
  - LUNG TRANSPLANT REJECTION [None]
  - OBSTRUCTIVE AIRWAYS DISORDER [None]
  - PARKINSON'S DISEASE [None]
